FAERS Safety Report 19805059 (Version 1)
Quarter: 2021Q3

REPORT INFORMATION
  Report Type: Spontaneous
  Country: US (occurrence: US)
  Receive Date: 20210908
  Receipt Date: 20210908
  Transmission Date: 20211014
  Serious: No
  Sender: FDA-Public Use
  Company Number: US-SA-2021SA294752

PATIENT
  Age: 27 Year
  Sex: Female

DRUGS (1)
  1. DUPIXENT [Suspect]
     Active Substance: DUPILUMAB
     Indication: DERMATITIS ATOPIC
     Dosage: FREQUENCY : OTHER
     Route: 058
     Dates: start: 20210813

REACTIONS (2)
  - Photosensitivity reaction [Unknown]
  - Miliaria [Unknown]

NARRATIVE: CASE EVENT DATE: 20210902
